FAERS Safety Report 8610235-X (Version None)
Quarter: 2012Q3

REPORT INFORMATION
  Report Type: 
  Country: None (occurrence: None)
  Receive Date: 20120810
  Receipt Date: 20120810
  Transmission Date: 20120928
  Serious: Yes (Life-Threatening)
  Sender: FDA-Public Use
  Company Number: None

PATIENT
  Age: 51 Year
  Sex: Male

DRUGS (1)
  1. METHYLNALTREXONE 12MG PFIZER [Suspect]
     Indication: CONSTIPATION
     Dosage: 12MG ONCE SQ
     Route: 058
     Dates: start: 20120324, end: 20120324

REACTIONS (2)
  - INTESTINAL PERFORATION [None]
  - BODY TEMPERATURE INCREASED [None]
